FAERS Safety Report 17952419 (Version 2)
Quarter: 2020Q3

REPORT INFORMATION
  Report Type: Report from Study
  Country: IT (occurrence: IT)
  Receive Date: 20200626
  Receipt Date: 20200713
  Transmission Date: 20201103
  Serious: Yes (Other)
  Sender: FDA-Public Use
  Company Number: IT-NEUROCRINE BIOSCIENCES INC.-2020NBI02143

PATIENT
  Age: 81 Year
  Sex: Male
  Weight: 71 kg

DRUGS (6)
  1. OPICAPONE [Suspect]
     Active Substance: OPICAPONE
     Indication: PARKINSON^S DISEASE
     Dosage: 50 MILLIGRAM, DAILY
     Route: 048
     Dates: start: 20200529, end: 20200612
  2. APROVEL [Concomitant]
     Active Substance: IRBESARTAN
     Indication: MYOCARDIAL ISCHAEMIA
     Dosage: UNKNOWN
  3. CARDIOASPIRIN [Concomitant]
     Active Substance: ASPIRIN
     Indication: PROPHYLAXIS
     Dosage: UNKNOWN
  4. LEVODOPA/BENSERAZIDE [Concomitant]
     Active Substance: BENSERAZIDE\LEVODOPA
     Indication: PARKINSON^S DISEASE
     Dosage: 600 MILLIGRAM, DAILY
     Dates: start: 20190603
  5. RASAGILINE. [Concomitant]
     Active Substance: RASAGILINE
     Indication: PARKINSON^S DISEASE
     Dosage: 1 MILLIGRAM, DAILY
     Dates: start: 20190603
  6. ROPINIROLE. [Concomitant]
     Active Substance: ROPINIROLE
     Indication: PARKINSON^S DISEASE
     Dosage: 4 MILLIGRAM, DAILY
     Dates: start: 20190603

REACTIONS (2)
  - Dystonia [Recovered/Resolved]
  - Therapy cessation [Unknown]

NARRATIVE: CASE EVENT DATE: 20200612
